FAERS Safety Report 15999986 (Version 5)
Quarter: 2023Q1

REPORT INFORMATION
  Report Type: Spontaneous
  Country: AT (occurrence: AT)
  Receive Date: 20190225
  Receipt Date: 20230125
  Transmission Date: 20230418
  Serious: Yes (Hospitalization, Other)
  Sender: FDA-Public Use
  Company Number: PHHY2019AT039654

PATIENT
  Age: 82 Year
  Sex: Female
  Weight: 82 kg

DRUGS (20)
  1. LETROZOLE [Suspect]
     Active Substance: LETROZOLE
     Indication: HER2 positive breast cancer
     Dosage: 2.5 MG, QD
     Route: 048
     Dates: start: 20181121
  2. DENOSUMAB [Suspect]
     Active Substance: DENOSUMAB
     Indication: HER2 positive breast cancer
     Dosage: 120 MG, Q4W (MOST RECENT DOSE PRIOR TO AE /JAN/2021)
     Route: 058
     Dates: start: 20181106
  3. TRASTUZUMAB [Suspect]
     Active Substance: TRASTUZUMAB
     Indication: HER2 positive breast cancer
     Dosage: 288.2 MG, Q4W (MOST RECENT DOSE PRIOR TO THE EVENT: 19/DEC/2018)
     Route: 042
     Dates: start: 20181128, end: 20181128
  4. TRASTUZUMAB [Suspect]
     Active Substance: TRASTUZUMAB
     Dosage: 288.2 MG, Q4W
     Route: 042
     Dates: start: 20181219
  5. CALMOLAN [Concomitant]
     Indication: Product used for unknown indication
     Dosage: UNK
     Route: 065
  6. VITAMINS WITH MINERALS [Concomitant]
     Active Substance: MINERALS\VITAMINS
     Indication: Product used for unknown indication
     Dosage: UNK
     Route: 065
  7. RANITIDINE HYDROCHLORIDE [Concomitant]
     Active Substance: RANITIDINE HYDROCHLORIDE
     Indication: Product used for unknown indication
     Dosage: UNK
     Route: 065
  8. NEBIVOLOL HYDROCHLORIDE [Concomitant]
     Active Substance: NEBIVOLOL HYDROCHLORIDE
     Indication: Product used for unknown indication
     Dosage: UNK
     Route: 065
  9. MACUSAN PLUS [Concomitant]
     Indication: Product used for unknown indication
     Dosage: UNK(ONGOING = CHECKED)
     Route: 065
  10. CANDESARTAN CILEXETIL AND HYDROCHLOROTHIAZIDE [Concomitant]
     Active Substance: CANDESARTAN CILEXETIL\HYDROCHLOROTHIAZIDE
     Indication: Product used for unknown indication
     Dosage: UNK
     Route: 065
  11. ACETAMINOPHEN [Concomitant]
     Active Substance: ACETAMINOPHEN
     Indication: Product used for unknown indication
     Dosage: UNK
     Route: 065
     Dates: start: 20181219, end: 20181219
  12. SIMVASTATIN [Concomitant]
     Active Substance: SIMVASTATIN
     Indication: Product used for unknown indication
     Dosage: UNK
     Route: 065
  13. PANTOPRAZOLE SODIUM [Concomitant]
     Active Substance: PANTOPRAZOLE SODIUM
     Indication: Product used for unknown indication
     Dosage: UNK
     Route: 065
  14. RILMENIDINE [Concomitant]
     Active Substance: RILMENIDINE
     Indication: Product used for unknown indication
     Dosage: UNK (ONGOING = CHECKED)
     Route: 065
  15. TRAMADOL [Concomitant]
     Active Substance: TRAMADOL
     Indication: Product used for unknown indication
     Dosage: UNK
     Route: 065
     Dates: start: 20201015
  16. ASCORBIC ACID [Concomitant]
     Active Substance: ASCORBIC ACID
     Indication: Product used for unknown indication
     Dosage: UNK
     Route: 065
     Dates: start: 20201015
  17. ADAMON [Concomitant]
     Indication: Product used for unknown indication
     Dosage: UNK (ONGOING- CHECKED)
     Route: 065
     Dates: start: 20201015
  18. MIRTAZAPINE [Concomitant]
     Active Substance: MIRTAZAPINE
     Indication: Product used for unknown indication
     Dosage: UNK
     Route: 065
     Dates: start: 20201015
  19. PREGABALIN [Concomitant]
     Active Substance: PREGABALIN
     Indication: Product used for unknown indication
     Dosage: UNK (ONGOING- CHECKED)
     Route: 065
     Dates: start: 20201015
  20. CANDESARTAN [Concomitant]
     Active Substance: CANDESARTAN
     Indication: Product used for unknown indication
     Dosage: UNK (ONGOING = CHECKED)
     Route: 065
     Dates: start: 20201015

REACTIONS (2)
  - Infusion related reaction [Recovered/Resolved]
  - Osteonecrosis of jaw [Not Recovered/Not Resolved]

NARRATIVE: CASE EVENT DATE: 20181128
